FAERS Safety Report 5661078-0 (Version None)
Quarter: 2008Q1

REPORT INFORMATION
  Report Type: 
  Country: None (occurrence: None)
  Receive Date: 20080304
  Receipt Date: 20080223
  Transmission Date: 20080703
  Serious: Yes (Other)
  Sender: FDA-Public Use
  Company Number: CHPA2008US03434

PATIENT
  Age: 82 Year
  Sex: Male

DRUGS (9)
  1. SLOW-FE              TABLET` [Suspect]
     Indication: MINERAL SUPPLEMENTATION
     Dosage: 160 MG, BID, ORAL
     Route: 048
     Dates: start: 20080213
  2. GLUCOPHAGE [Concomitant]
  3. METOPROLOL TARTRATE [Concomitant]
  4. OCUVITE       (ASCORBIC ACID, RETINOL, TOCOPHEROL) [Concomitant]
  5. STOOL SOFTENER        (DOCUSATE SODIUM) [Concomitant]
  6. CENTRUM        (MINERALS NOS, VITAMINS NOS) [Concomitant]
  7. CALCIUM              (CALCIUM) [Concomitant]
  8. MAGNESIUM      (MAGNESIUM) [Concomitant]
  9. ZINC   (ZINC) [Concomitant]

REACTIONS (6)
  - ANOREXIA [None]
  - DIAPHRAGMATIC DISORDER [None]
  - ERUCTATION [None]
  - MALAISE [None]
  - PAIN [None]
  - VOMITING [None]
